FAERS Safety Report 5446228-3 (Version None)
Quarter: 2007Q3

REPORT INFORMATION
  Report Type: 
  Country: None (occurrence: None)
  Receive Date: 20070907
  Receipt Date: 20070830
  Transmission Date: 20080115
  Serious: Yes (Other)
  Sender: FDA-Public Use
  Company Number: PHHO2007AR14471

PATIENT
  Age: 49 Year
  Sex: Female

DRUGS (2)
  1. DIOVAN D [Suspect]
     Indication: HYPERTENSION
     Dosage: 80 MG, QD
     Route: 048
     Dates: start: 20070501, end: 20070825
  2. DIOVAN D [Suspect]
     Dosage: 80 MG, QD
     Route: 048
     Dates: start: 20070829

REACTIONS (5)
  - ANGINA PECTORIS [None]
  - DIZZINESS [None]
  - DRUG INEFFECTIVE [None]
  - PARAESTHESIA [None]
  - RESTLESSNESS [None]
